FAERS Safety Report 11461196 (Version 1)
Quarter: 2015Q3

REPORT INFORMATION
  Report Type: Spontaneous
  Country: US (occurrence: US)
  Receive Date: 20150831
  Receipt Date: 20150831
  Transmission Date: 20151125
  Serious: No
  Sender: FDA-Public Use
  Company Number: US-ELI_LILLY_AND_COMPANY-US201007002136

PATIENT
  Age: 62 Year
  Sex: Female

DRUGS (1)
  1. CYMBALTA [Suspect]
     Active Substance: DULOXETINE HYDROCHLORIDE
     Indication: DEPRESSION
     Dosage: 30 MG, DAILY (1/D)

REACTIONS (9)
  - Tinnitus [Recovered/Resolved]
  - Fatigue [Recovered/Resolved]
  - Decreased appetite [Recovered/Resolved]
  - Nausea [Recovered/Resolved]
  - Energy increased [Recovered/Resolved]
  - Gastrointestinal disorder [Recovered/Resolved]
  - Constipation [Recovered/Resolved]
  - Hyperhidrosis [Recovered/Resolved]
  - Dry mouth [Recovered/Resolved]
